APPROVED DRUG PRODUCT: VALTREX
Active Ingredient: VALACYCLOVIR HYDROCHLORIDE
Strength: EQ 500MG BASE
Dosage Form/Route: TABLET;ORAL
Application: N020487 | Product #001 | TE Code: AB
Applicant: GLAXOSMITHKLINE
Approved: Jun 23, 1995 | RLD: Yes | RS: No | Type: RX